FAERS Safety Report 14923520 (Version 1)
Quarter: 2018Q2

REPORT INFORMATION
  Report Type: Report from Study
  Country: US (occurrence: US)
  Receive Date: 20180522
  Receipt Date: 20180522
  Transmission Date: 20180711
  Serious: No
  Sender: FDA-Public Use
  Company Number: PHEH2018US019024

PATIENT
  Sex: Male

DRUGS (1)
  1. COSENTYX [Suspect]
     Active Substance: SECUKINUMAB
     Indication: PSORIASIS
     Dosage: 300 MG, QMO
     Route: 058

REACTIONS (7)
  - Psoriasis [Unknown]
  - Pruritus [Unknown]
  - Skin plaque [Unknown]
  - Ear pain [Unknown]
  - Excessive cerumen production [Unknown]
  - Arthralgia [Unknown]
  - Drug ineffective [Unknown]
